FAERS Safety Report 18830997 (Version 1)
Quarter: 2021Q1

REPORT INFORMATION
  Report Type: Spontaneous
  Country: US (occurrence: US)
  Receive Date: 20210203
  Receipt Date: 20210203
  Transmission Date: 20210419
  Serious: No
  Sender: FDA-Public Use
  Company Number: US-AJANTA PHARMA USA INC.-2106218

PATIENT
  Sex: Female

DRUGS (1)
  1. DULOXETINE (ANDA 208706) [Suspect]
     Active Substance: DULOXETINE

REACTIONS (2)
  - Drug ineffective [Not Recovered/Not Resolved]
  - Headache [Not Recovered/Not Resolved]
